FAERS Safety Report 15193431 (Version 3)
Quarter: 2019Q1

REPORT INFORMATION
  Report Type: Spontaneous
  Country: GR (occurrence: GR)
  Receive Date: 20180725
  Receipt Date: 20190228
  Transmission Date: 20190417
  Serious: Yes (Life-Threatening, Hospitalization, Other)
  Sender: FDA-Public Use
  Company Number: GR-BAUSCH-BL-2018-019822

PATIENT
  Age: 85 Year
  Sex: Male

DRUGS (2)
  1. AMLODIPINE [Concomitant]
     Active Substance: AMLODIPINE BESYLATE
     Indication: PRODUCT USED FOR UNKNOWN INDICATION
  2. THEOPHYLLINE [Suspect]
     Active Substance: THEOPHYLLINE ANHYDROUS
     Indication: SUICIDE ATTEMPT
     Dosage: LARGE QUANTITY OF EXTENDED-RELEASE
     Route: 065

REACTIONS (12)
  - Respiratory alkalosis [Unknown]
  - Cardiotoxicity [Unknown]
  - Pneumonia aspiration [Unknown]
  - Loss of consciousness [Recovered/Resolved]
  - Diarrhoea [Unknown]
  - Vomiting [Unknown]
  - Hypotension [Recovering/Resolving]
  - Hypokalaemia [Unknown]
  - Acute kidney injury [Recovered/Resolved]
  - Shock [Unknown]
  - Intentional overdose [Recovered/Resolved]
  - Atrial fibrillation [Recovered/Resolved]
